FAERS Safety Report 10227007 (Version 1)
Quarter: 2014Q2

REPORT INFORMATION
  Report Type: Spontaneous
  Country: US (occurrence: None)
  Receive Date: 20140606
  Receipt Date: 20140606
  Transmission Date: 20141212
  Serious: Yes (Other)
  Sender: FDA-Public Use
  Company Number: UNT-2014-000875

PATIENT
  Age: 56 Year
  Sex: Female
  Weight: 68 kg

DRUGS (2)
  1. TYVASO (TREPROSTINIL SODIUM) INHALATION GAS, 0.6MG/ML [Suspect]
     Indication: COR PULMONALE CHRONIC
     Route: 055
     Dates: start: 20130619
  2. REVATIO (SILDENAFIL CITRATE) [Concomitant]

REACTIONS (5)
  - Cardiac failure congestive [None]
  - Staphylococcal infection [None]
  - Oedema peripheral [None]
  - Malaise [None]
  - Malaise [None]
